FAERS Safety Report 8449777-9 (Version None)
Quarter: 2012Q2

REPORT INFORMATION
  Report Type: 
  Country: None (occurrence: None)
  Receive Date: 20120620
  Receipt Date: 20120612
  Transmission Date: 20120825
  Serious: Yes (Hospitalization)
  Sender: FDA-Public Use
  Company Number: US-BAYER-2012-059516

PATIENT
  Age: 34 Year
  Sex: Female

DRUGS (8)
  1. DIPHENHYDRAMINE HCL [Concomitant]
     Dosage: 50 MG,EVERY 6 HOURS AS NEEDED
     Route: 048
  2. CYCLOBENZAPRINE [Concomitant]
     Dosage: 10 MG, HS
     Route: 048
     Dates: start: 20091112
  3. NSAID'S [Concomitant]
  4. DULOXETIME HYDROCHLORIDE [Concomitant]
     Dosage: 60 MG, QD
     Route: 048
  5. ACETAMINOPHEN [Concomitant]
     Dosage: 1000 MG,EVERY 6 HOUR AS NEEDED
  6. PREGABALIN [Concomitant]
     Dosage: 50 MG, BID
     Route: 048
  7. CEPACOL [Concomitant]
     Dosage: UNK UNK, PRN
     Route: 048
  8. YAZ [Suspect]
     Indication: MENSTRUAL CYCLE MANAGEMENT
     Dosage: UNK

REACTIONS (2)
  - PULMONARY EMBOLISM [None]
  - DEEP VEIN THROMBOSIS [None]
